FAERS Safety Report 4488004-4 (Version None)
Quarter: 2004Q4

REPORT INFORMATION
  Report Type: 
  Country: None (occurrence: None)
  Receive Date: 20041025
  Receipt Date: 20041008
  Transmission Date: 20050328
  Serious: Yes (Life-Threatening)
  Sender: FDA-Public Use
  Company Number: 2004AP05049

PATIENT
  Age: 71 Year
  Sex: Male
  Weight: 72.2 kg

DRUGS (11)
  1. OMEPRAL [Suspect]
     Indication: GASTRIC ULCER HAEMORRHAGE
     Dosage: 20 MG DAILY IV
     Route: 042
     Dates: start: 20030707, end: 20030713
  2. GASTER D [Concomitant]
  3. CEFOTIAM HYDROCHLORIDE [Concomitant]
  4. BAYASPIRIN [Concomitant]
  5. XYLOCAINE [Concomitant]
  6. ZANTAC [Concomitant]
  7. SIGMART [Concomitant]
  8. LASIX [Concomitant]
  9. ALLOID [Concomitant]
  10. CARVEDILOL [Concomitant]
  11. LANSOPRAZOLE [Concomitant]

REACTIONS (3)
  - CONDITION AGGRAVATED [None]
  - METASTASES TO BONE [None]
  - RENAL FAILURE ACUTE [None]
